FAERS Safety Report 11867233 (Version 11)
Quarter: 2017Q1

REPORT INFORMATION
  Report Type: Spontaneous
  Country: US (occurrence: US)
  Receive Date: 20151224
  Receipt Date: 20170309
  Transmission Date: 20170428
  Serious: Yes (Other)
  Sender: FDA-Public Use
  Company Number: US-PFIZER INC-2015412660

PATIENT
  Age: 47 Year
  Sex: Male
  Weight: 81 kg

DRUGS (4)
  1. SUTENT [Suspect]
     Active Substance: SUNITINIB MALATE
     Indication: RENAL CANCER METASTATIC
     Dosage: 50 MG, CYCLIC (1 CAPS D1-D28 Q42 D)
     Route: 048
     Dates: start: 20141104
  2. SUTENT [Suspect]
     Active Substance: SUNITINIB MALATE
     Dosage: 50 MG, CYCLIC (DAYS 1-28 Q 42 DAYS)
     Route: 048
  3. SUTENT [Suspect]
     Active Substance: SUNITINIB MALATE
     Dosage: 50 MG, CYCLIC (D1-D28 Q 42D)
     Route: 048
     Dates: start: 20141104
  4. SUTENT [Suspect]
     Active Substance: SUNITINIB MALATE
     Dosage: 50 MG, CYCLIC (DAY 1-28 DAYS Q 42 DAY)
     Route: 048
     Dates: start: 20141104, end: 20170301

REACTIONS (23)
  - Memory impairment [Unknown]
  - Loss of consciousness [Unknown]
  - Rash erythematous [Recovering/Resolving]
  - Back pain [Unknown]
  - Pain in extremity [Unknown]
  - Balance disorder [Unknown]
  - Neoplasm progression [Unknown]
  - Diarrhoea [Unknown]
  - Thinking abnormal [Recovered/Resolved]
  - Headache [Not Recovered/Not Resolved]
  - Fall [Unknown]
  - Confusional state [Unknown]
  - Laboratory test abnormal [Unknown]
  - Blindness [Unknown]
  - Arthralgia [Unknown]
  - Vomiting [Unknown]
  - Pruritus [Unknown]
  - Accident [Unknown]
  - Injury [Unknown]
  - Malaise [Unknown]
  - Thyroid function test abnormal [Unknown]
  - Decreased appetite [Unknown]
  - Weight decreased [Recovered/Resolved]

NARRATIVE: CASE EVENT DATE: 201511
